FAERS Safety Report 4718973-6 (Version None)
Quarter: 2005Q3

REPORT INFORMATION
  Report Type: 
  Country: None (occurrence: None)
  Receive Date: 20050720
  Receipt Date: 20050707
  Transmission Date: 20060218
  Serious: Yes (Hospitalization)
  Sender: FDA-Public Use
  Company Number: 2005097901

PATIENT
  Age: 75 Year
  Sex: Female

DRUGS (14)
  1. PREDNISONE [Suspect]
     Indication: TEMPORAL ARTERITIS
     Dosage: 7.5 MG (5 MG, 1 IN 1 D), ORAL
     Route: 048
  2. ASPIRIN [Suspect]
     Indication: ILL-DEFINED DISORDER
     Dosage: 75 MG (75 MG, 1 IN 1 D), ORAL
     Route: 048
  3. FOSAMAX [Concomitant]
  4. LANSOPRAZOLE [Concomitant]
  5. RAMIPRIL [Concomitant]
  6. SIMVASTATIN [Concomitant]
  7. TRAMADOL HCL [Concomitant]
  8. ALEVEDON (PARACETAMOL) [Concomitant]
  9. LAXOBERAL (SODIUM PICOSULFATE) [Concomitant]
  10. IMPUGAN (FUROSEMIDE) [Concomitant]
  11. SELOKEN (METOPROLOL TARTARATE) [Concomitant]
  12. NITROMEX (GLYCERYL TRINITRATE) [Concomitant]
  13. FLUNITRAZEPAM (FLUNITRAZEPAM) [Concomitant]
  14. NOVONORM (REPAGLINIDE) [Concomitant]

REACTIONS (9)
  - ACTIVATED PARTIAL THROMBOPLASTIN TIME SHORTENED [None]
  - BLOOD URINE PRESENT [None]
  - CONSTIPATION [None]
  - DIZZINESS [None]
  - GASTROINTESTINAL HAEMORRHAGE [None]
  - NAUSEA [None]
  - PITTING OEDEMA [None]
  - RECTAL HAEMORRHAGE [None]
  - VOMITING [None]
